FAERS Safety Report 18223975 (Version 1)
Quarter: 2020Q3

REPORT INFORMATION
  Report Type: Spontaneous
  Country: IT (occurrence: IT)
  Receive Date: 20200902
  Receipt Date: 20200902
  Transmission Date: 20201103
  Serious: Yes (Other)
  Sender: FDA-Public Use
  Company Number: IT-BRISTOL-MYERS SQUIBB COMPANY-BMS-2020-071620

PATIENT
  Age: 89 Year
  Sex: Male

DRUGS (5)
  1. METOPROLOL. [Concomitant]
     Active Substance: METOPROLOL
     Indication: HEART RATE
     Dosage: 50 (UNIT NOT SPECIFIED), DAILY
     Route: 048
     Dates: start: 20000101, end: 20200823
  2. ELIQUIS [Suspect]
     Active Substance: APIXABAN
     Indication: CEREBROVASCULAR ACCIDENT PROPHYLAXIS
     Dosage: 5 MILLIGRAM, BID
     Route: 065
     Dates: end: 20200821
  3. METOPROLOL. [Concomitant]
     Active Substance: METOPROLOL
     Dosage: 25 (UNIT NOT SPECIFIED), DAILY
     Route: 048
     Dates: start: 20000101, end: 20200823
  4. RAMIPRIL. [Concomitant]
     Active Substance: RAMIPRIL
     Indication: HYPERTENSION
     Dosage: 2.5 (UNIT NOT SPECIFIED), DAILY
     Route: 048
     Dates: start: 20000101, end: 20200823
  5. HYDROCHLOROTHIAZIDE. [Concomitant]
     Active Substance: HYDROCHLOROTHIAZIDE
     Indication: HYPERTENSION
     Dosage: 12.5 (UNIT NOT SPECIFIED), DAILY
     Route: 048
     Dates: start: 20000101, end: 20200823

REACTIONS (3)
  - Cardiac failure congestive [Unknown]
  - Pneumonia [Unknown]
  - Haemorrhagic stroke [Unknown]

NARRATIVE: CASE EVENT DATE: 20200822
